FAERS Safety Report 21565182 (Version 5)
Quarter: 2025Q3

REPORT INFORMATION
  Report Type: Report from Study
  Country: US (occurrence: US)
  Receive Date: 20221108
  Receipt Date: 20250811
  Transmission Date: 20251021
  Serious: Yes (Hospitalization, Other)
  Sender: ABBVIE
  Company Number: US-ABBVIE-4189103

PATIENT
  Age: 64 Year
  Sex: Female
  Weight: 77 kg

DRUGS (28)
  1. HUMIRA [Suspect]
     Active Substance: ADALIMUMAB
     Indication: Rheumatoid arthritis
     Route: 058
  2. HUMIRA [Suspect]
     Active Substance: ADALIMUMAB
     Route: 058
     Dates: end: 202411
  3. FOLIC ACID [Concomitant]
     Active Substance: FOLIC ACID
     Indication: Osteoporosis
  4. PROLIA [Concomitant]
     Active Substance: DENOSUMAB
     Indication: Osteoporosis
  5. VITAMIN D3 [Concomitant]
     Active Substance: CHOLECALCIFEROL
     Indication: Osteoporosis
  6. FLECAINIDE ACETATE [Concomitant]
     Active Substance: FLECAINIDE ACETATE
     Indication: Atrial fibrillation
  7. DILTIAZEM [Concomitant]
     Active Substance: DILTIAZEM
     Indication: Blood pressure abnormal
  8. WARFARIN SODIUM [Concomitant]
     Active Substance: WARFARIN SODIUM
     Indication: Thrombosis
  9. WARFARIN SODIUM [Concomitant]
     Active Substance: WARFARIN SODIUM
     Indication: Thrombosis
  10. Refresh classic lubricant eye drops [Concomitant]
     Indication: Dry eye
  11. MIEBO [Concomitant]
     Active Substance: PERFLUOROHEXYLOCTANE
     Indication: Dry eye
  12. FAMOTIDINE [Concomitant]
     Active Substance: FAMOTIDINE
     Indication: Gastrooesophageal reflux disease
  13. NITROFURANTOIN [Concomitant]
     Active Substance: NITROFURANTOIN
     Indication: Urinary tract infection
  14. FLUTICASONE [Concomitant]
     Active Substance: FLUTICASONE
     Indication: Product used for unknown indication
  15. ALBUTEROL [Concomitant]
     Active Substance: ALBUTEROL
     Indication: Asthma
  16. CLARITIN [Concomitant]
     Active Substance: LORATADINE
     Indication: Allergic sinusitis
  17. ONDANSETRON [Concomitant]
     Active Substance: ONDANSETRON
     Indication: Nausea
  18. DICYCLOMINE [Concomitant]
     Active Substance: DICYCLOMINE HYDROCHLORIDE
     Indication: Irritable bowel syndrome
  19. METHYLPREDNISOLONE [Concomitant]
     Active Substance: METHYLPREDNISOLONE
     Indication: Back pain
  20. SYNTHROID [Concomitant]
     Active Substance: LEVOTHYROXINE SODIUM
     Indication: Hypothyroidism
     Dosage: 112 MCG
  21. CYCLOBENZAPRINE [Concomitant]
     Active Substance: CYCLOBENZAPRINE
     Indication: Restless legs syndrome
  22. TRAZODONE [Concomitant]
     Active Substance: TRAZODONE HYDROCHLORIDE
     Indication: Insomnia
  23. HYDROCODONE BITARTRATE AND ACETAMINOPHEN [Concomitant]
     Active Substance: ACETAMINOPHEN\HYDROCODONE BITARTRATE
     Indication: Pain
  24. METHOCARBAMOL [Concomitant]
     Active Substance: METHOCARBAMOL
     Indication: Lumbar radiculopathy
  25. GABAPENTIN [Concomitant]
     Active Substance: GABAPENTIN
     Indication: Lumbar radiculopathy
  26. GABAPENTIN [Concomitant]
     Active Substance: GABAPENTIN
     Indication: Lumbar radiculopathy
  27. XIIDRA [Concomitant]
     Active Substance: LIFITEGRAST
     Indication: Dry eye
  28. ARAVA [Suspect]
     Active Substance: LEFLUNOMIDE
     Indication: Product used for unknown indication
     Route: 065

REACTIONS (15)
  - Renal function test abnormal [Recovering/Resolving]
  - Spinal fusion surgery [Recovered/Resolved]
  - Thyroid function test abnormal [Unknown]
  - Pain [Recovered/Resolved]
  - Nerve block [Unknown]
  - Hepatic enzyme increased [Recovering/Resolving]
  - Hepatic steatosis [Unknown]
  - Spinal operation [Unknown]
  - Device placement issue [Recovering/Resolving]
  - Device placement issue [Unknown]
  - Bursitis [Recovered/Resolved]
  - Sciatica [Recovering/Resolving]
  - Fall [Recovering/Resolving]
  - Spinal fusion surgery [Unknown]
  - Fall [Unknown]

NARRATIVE: CASE EVENT DATE: 20220224
